FAERS Safety Report 6174338-4 (Version None)
Quarter: 2009Q2

REPORT INFORMATION
  Report Type: 
  Country: None (occurrence: None)
  Receive Date: 20090430
  Receipt Date: 20080519
  Transmission Date: 20091009
  Serious: No
  Sender: FDA-Public Use
  Company Number: US-ASTRAZENECA-2008UW10251

PATIENT
  Age: 65 Year
  Sex: Female

DRUGS (7)
  1. NEXIUM [Suspect]
     Indication: GASTROOESOPHAGEAL REFLUX DISEASE
     Route: 048
     Dates: start: 19980101
  2. NEXIUM [Suspect]
     Indication: ULCER
     Route: 048
     Dates: start: 19980101
  3. ARIMIDEX [Concomitant]
  4. CRESTOR [Concomitant]
  5. NORTRIPTYLINE HCL [Concomitant]
  6. GABAPENTIN [Concomitant]
  7. ACTONEL [Concomitant]

REACTIONS (8)
  - ABDOMINAL DISTENSION [None]
  - ABDOMINAL PAIN UPPER [None]
  - ABDOMINAL RIGIDITY [None]
  - AGEUSIA [None]
  - INCREASED APPETITE [None]
  - MIGRAINE [None]
  - NAIL DISORDER [None]
  - SINUS DISORDER [None]
